FAERS Safety Report 11544713 (Version 1)
Quarter: 2015Q3

REPORT INFORMATION
  Report Type: Other
  Country: GB (occurrence: GB)
  Receive Date: 20150924
  Receipt Date: 20150924
  Transmission Date: 20151125
  Serious: Yes (Disabling)
  Sender: FDA-Public Use
  Company Number: GB-APOTEX-2015AP012687

PATIENT
  Age: 81 Year
  Sex: Female

DRUGS (1)
  1. LATANOPROST. [Suspect]
     Active Substance: LATANOPROST
     Indication: PRODUCT USED FOR UNKNOWN INDICATION
     Dosage: 2 GTT, QD
     Route: 047
     Dates: start: 201505

REACTIONS (5)
  - Foreign body sensation in eyes [Recovering/Resolving]
  - Visual acuity reduced [Recovering/Resolving]
  - Product substitution issue [Unknown]
  - Eye pain [Recovering/Resolving]
  - Ocular surface disease [Recovering/Resolving]

NARRATIVE: CASE EVENT DATE: 201505
